FAERS Safety Report 5140076-X (Version None)
Quarter: 2006Q4

REPORT INFORMATION
  Report Type: 
  Country: None (occurrence: None)
  Receive Date: 20061031
  Receipt Date: 20061018
  Transmission Date: 20070319
  Serious: Yes (Other)
  Sender: FDA-Public Use
  Company Number: PHBS2006JP16371

PATIENT
  Sex: Male

DRUGS (3)
  1. CELLCEPT [Suspect]
     Indication: HEART TRANSPLANT
     Route: 065
  2. PREDNISOLONE [Suspect]
     Indication: HEART TRANSPLANT
     Route: 065
  3. CYCLOSPORINE [Suspect]
     Indication: HEART TRANSPLANT
     Route: 065

REACTIONS (3)
  - DRUG LEVEL DECREASED [None]
  - HEREDITARY HAEMOLYTIC ANAEMIA [None]
  - PANCYTOPENIA [None]
